FAERS Safety Report 11499378 (Version 2)
Quarter: 2015Q4

REPORT INFORMATION
  Report Type: Spontaneous
  Country: CO (occurrence: CO)
  Receive Date: 20150914
  Receipt Date: 20151024
  Transmission Date: 20160304
  Serious: Yes (Other)
  Sender: FDA-Public Use
  Company Number: CO-UCBSA-2015028818

PATIENT
  Age: 55 Year
  Sex: Male
  Weight: 76 kg

DRUGS (3)
  1. LOSARTAN. [Concomitant]
     Active Substance: LOSARTAN
     Indication: HYPERTENSION
     Dosage: 1 DF, ONCE DAILY (QD)
  2. AMLODIPINE [Concomitant]
     Active Substance: AMLODIPINE BESYLATE
     Indication: HYPERTENSION
     Dosage: 1 DF, ONCE DAILY (QD)
  3. KEPPRA [Suspect]
     Active Substance: LEVETIRACETAM
     Indication: EPILEPSY
     Dosage: 500 MG, 2X/DAY (BID)
     Route: 048
     Dates: start: 2013

REACTIONS (3)
  - Seizure [Not Recovered/Not Resolved]
  - Drug ineffective [Unknown]
  - Loss of consciousness [Unknown]
